FAERS Safety Report 7828415-X (Version None)
Quarter: 2011Q4

REPORT INFORMATION
  Report Type: 
  Country: None (occurrence: None)
  Receive Date: 20111020
  Receipt Date: 20111017
  Transmission Date: 20120403
  Serious: No
  Sender: FDA-Public Use
  Company Number: US-PFIZER INC-2011249750

PATIENT
  Sex: Male

DRUGS (2)
  1. LYRICA [Suspect]
     Indication: PAIN
     Dosage: 25MG DAILY
     Route: 048
     Dates: start: 20110214
  2. LYRICA [Suspect]
     Dosage: UNK
     Dates: start: 20110101

REACTIONS (1)
  - DIZZINESS [None]
